FAERS Safety Report 18354677 (Version 3)
Quarter: 2021Q1

REPORT INFORMATION
  Report Type: Spontaneous
  Country: US (occurrence: US)
  Receive Date: 20201007
  Receipt Date: 20210331
  Transmission Date: 20210419
  Serious: Yes (Death, Other)
  Sender: FDA-Public Use
  Company Number: US-EISAI MEDICAL RESEARCH-EC-2020-081691

PATIENT
  Sex: Female

DRUGS (2)
  1. KEYTRUDA [Suspect]
     Active Substance: PEMBROLIZUMAB
     Indication: METASTATIC UTERINE CANCER
     Route: 042
     Dates: start: 20200326, end: 20200326
  2. LENVIMA [Suspect]
     Active Substance: LENVATINIB
     Indication: METASTATIC UTERINE CANCER
     Dosage: DOSE AND FREQUENCY UNKNOWN
     Route: 048

REACTIONS (2)
  - Death [Fatal]
  - Pneumonitis [Recovering/Resolving]

NARRATIVE: CASE EVENT DATE: 202003
